FAERS Safety Report 10403245 (Version 1)
Quarter: 2014Q3

REPORT INFORMATION
  Report Type: Spontaneous
  Country: CA (occurrence: CA)
  Receive Date: 20140822
  Receipt Date: 20140822
  Transmission Date: 20150326
  Serious: Yes (Other)
  Sender: FDA-Public Use
  Company Number: CA-PFIZER INC-2014231409

PATIENT
  Age: 45 Year
  Sex: Male
  Weight: 91.16 kg

DRUGS (1)
  1. SUTENT [Suspect]
     Active Substance: SUNITINIB MALATE
     Dosage: 50 MG, CYCLIC
     Route: 048

REACTIONS (6)
  - Rash pustular [Unknown]
  - Testicular pain [Unknown]
  - Tongue ulceration [Unknown]
  - Skin reaction [Unknown]
  - Eye pruritus [Unknown]
  - Gait disturbance [Unknown]
